FAERS Safety Report 21211845 (Version 1)
Quarter: 2022Q3

REPORT INFORMATION
  Report Type: Spontaneous
  Country: US (occurrence: US)
  Receive Date: 20220815
  Receipt Date: 20220815
  Transmission Date: 20221027
  Serious: Yes (Hospitalization)
  Sender: FDA-Public Use
  Company Number: US-Kaleo, Inc.-2022KL000056

PATIENT
  Age: 10 Year
  Sex: Male

DRUGS (1)
  1. AUVI-Q [Suspect]
     Active Substance: EPINEPHRINE

REACTIONS (3)
  - Adverse reaction [Unknown]
  - Liquid product physical issue [Unknown]
  - Product temperature excursion issue [Unknown]
